FAERS Safety Report 23456708 (Version 1)
Quarter: 2024Q1

REPORT INFORMATION
  Report Type: Spontaneous
  Country: US (occurrence: None)
  Receive Date: 20240129
  Receipt Date: 20240129
  Transmission Date: 20240409
  Serious: Yes (Other)
  Sender: FDA-Public Use
  Company Number: None

PATIENT
  Age: 74 Year
  Sex: Female

DRUGS (1)
  1. PIRFENIDONE [Suspect]
     Active Substance: PIRFENIDONE
     Indication: Idiopathic pulmonary fibrosis
     Dosage: FREQUENCY : DAILY;?
     Route: 048
     Dates: start: 20230814

REACTIONS (5)
  - Therapy interrupted [None]
  - Adverse drug reaction [None]
  - Respiratory syncytial virus infection [None]
  - Eye swelling [None]
  - Pruritus [None]

NARRATIVE: CASE EVENT DATE: 20240129
